FAERS Safety Report 10913507 (Version 3)
Quarter: 2015Q2

REPORT INFORMATION
  Report Type: Report from Study
  Country: BE (occurrence: BE)
  Receive Date: 20150313
  Receipt Date: 20150403
  Transmission Date: 20150821
  Serious: Yes (Hospitalization)
  Sender: FDA-Public Use
  Company Number: BE-AMGEN-BELCT2015022417

PATIENT
  Age: 76 Year
  Sex: Female
  Weight: 75.9 kg

DRUGS (23)
  1. FOLAVIT [Concomitant]
     Indication: FOLATE DEFICIENCY
     Dosage: 4 MG, UNK
     Route: 048
     Dates: start: 20140701
  2. RUPATALL [Concomitant]
     Indication: RHINITIS ALLERGIC
     Dosage: 10 MG, QD
     Route: 048
     Dates: start: 20140606
  3. ZOMETA [Concomitant]
     Active Substance: ZOLEDRONIC ACID
     Indication: BONE LESION
     Dosage: 2 MG, AS NECESSARY
     Route: 042
     Dates: start: 20140701
  4. ACYCLOVIR                          /00587301/ [Concomitant]
     Active Substance: ACYCLOVIR
     Indication: PROPHYLAXIS
     Dosage: 400 MG, TID
     Route: 048
     Dates: start: 20140701
  5. AUGMENTIN [Concomitant]
     Active Substance: AMOXICILLIN\CLAVULANATE POTASSIUM
     Indication: RESPIRATORY TRACT INFECTION
     Dosage: UNK UNK, QD
     Route: 048
     Dates: start: 20150305, end: 20150317
  6. MELPHALAN [Suspect]
     Active Substance: MELPHALAN
     Indication: PLASMA CELL MYELOMA
     Dosage: 12 MG, PER CHEMO REGIM
     Route: 048
     Dates: start: 20140701
  7. PREDNISONE. [Suspect]
     Active Substance: PREDNISONE
     Indication: PLASMA CELL MYELOMA
     Dosage: 115 MG, PER CHEMO REGIM
     Route: 048
     Dates: start: 20140701
  8. FUROSEMIDE. [Concomitant]
     Active Substance: FUROSEMIDE
     Indication: OEDEMA
     Dosage: 40 MG, QD
     Route: 048
     Dates: start: 20140701
  9. FENTANYL. [Concomitant]
     Active Substance: FENTANYL
     Indication: BONE PAIN
     Dosage: 25 MG, QD
     Route: 062
     Dates: start: 20140701
  10. ZOFRAN                             /00955301/ [Concomitant]
     Active Substance: ONDANSETRON HYDROCHLORIDE
     Indication: NAUSEA
     Dosage: 4 MG, AS NECESSARY
     Route: 042
     Dates: start: 20140923
  11. D-CURE [Concomitant]
     Indication: PROPHYLAXIS
     Dosage: 25000 IU, UNK
     Route: 048
     Dates: start: 20140701
  12. MONTELUKAST [Concomitant]
     Active Substance: MONTELUKAST SODIUM
     Indication: RHINITIS ALLERGIC
     Dosage: 10 MG, QD
     Route: 048
     Dates: start: 20140606
  13. MOXONIDINE [Concomitant]
     Active Substance: MOXONIDINE
     Indication: HYPERTENSION
     Dosage: 0.4 MG, QD
     Route: 048
     Dates: start: 20140701
  14. CALCICHEW [Concomitant]
     Active Substance: CALCIUM CARBONATE
     Indication: BONE LESION
     Dosage: 500 MG, QD
     Route: 048
     Dates: start: 20140708
  15. CARFILZOMIB [Suspect]
     Active Substance: CARFILZOMIB
     Indication: PLASMA CELL MYELOMA
     Dosage: 36 MG/M2, PER CHEMO REGIM
     Route: 042
     Dates: start: 20140106, end: 20150218
  16. ALDACTONE [Concomitant]
     Active Substance: SPIRONOLACTONE
     Indication: OEDEMA
     Dosage: 40 MG, QD
     Route: 048
     Dates: start: 20140701
  17. LITICAN                            /00690801/ [Concomitant]
     Indication: NAUSEA
     Dosage: 50 MG, AS NECESSARY
     Route: 048
     Dates: start: 20140701
  18. LASIX [Concomitant]
     Active Substance: FUROSEMIDE
     Indication: OEDEMA
     Dosage: 250 MG, AS NECESSARY
     Route: 042
     Dates: start: 20140701
  19. LACTULOSE. [Concomitant]
     Active Substance: LACTULOSE
     Indication: CONSTIPATION
     Dosage: 15 ML, AS NECESSARY
     Route: 048
     Dates: start: 20140701
  20. TEMESTA                            /00273201/ [Concomitant]
     Active Substance: LORAZEPAM
     Indication: NAUSEA
     Dosage: 2.5 MG, AS NECESSARY
     Route: 048
     Dates: start: 20141202
  21. PARACETAMOL [Concomitant]
     Active Substance: ACETAMINOPHEN
     Indication: PROPHYLAXIS
     Dosage: 1 G, AS NECESSARY
     Route: 042
     Dates: start: 20141014
  22. RANITIDINE [Concomitant]
     Active Substance: RANITIDINE\RANITIDINE HYDROCHLORIDE
     Indication: GASTROOESOPHAGEAL REFLUX DISEASE
     Dosage: 150 MG, QD
     Route: 048
     Dates: start: 20140701
  23. ALPRAZOLAM. [Concomitant]
     Active Substance: ALPRAZOLAM
     Indication: NAUSEA
     Dosage: 0.25 MG, AS NECESSARY
     Route: 048
     Dates: start: 20141104

REACTIONS (1)
  - Pulmonary embolism [Recovered/Resolved]

NARRATIVE: CASE EVENT DATE: 20150310
